FAERS Safety Report 10203498 (Version 2)
Quarter: 2014Q2

REPORT INFORMATION
  Report Type: Spontaneous
  Country: US (occurrence: None)
  Receive Date: 20140523
  Receipt Date: 20140617
  Transmission Date: 20141212
  Serious: Yes (Other)
  Sender: FDA-Public Use
  Company Number: 2014-US-006019

PATIENT
  Age: 20 Year
  Sex: Female

DRUGS (1)
  1. XYREM [Suspect]
     Indication: NARCOLEPSY
     Route: 048
     Dates: start: 201301, end: 2013

REACTIONS (8)
  - Psychogenic seizure [None]
  - Fibromyalgia [None]
  - Feeling abnormal [None]
  - Muscle spasms [None]
  - Depression [None]
  - Suicidal ideation [None]
  - Feeling abnormal [None]
  - Psychogenic seizure [None]
